FAERS Safety Report 9716504 (Version 1)
Quarter: 2013Q4

REPORT INFORMATION
  Report Type: Spontaneous
  Country: US (occurrence: None)
  Receive Date: 20131126
  Receipt Date: 20131126
  Transmission Date: 20140711
  Serious: Yes (Hospitalization)
  Sender: FDA-Public Use
  Company Number: None

PATIENT
  Age: 45 Year
  Sex: Female
  Weight: 108.86 kg

DRUGS (1)
  1. YAZ [Suspect]
     Indication: POLYCYSTIC OVARIES
     Route: 048

REACTIONS (1)
  - Pulmonary embolism [None]
